FAERS Safety Report 10989407 (Version 2)
Quarter: 2015Q2

REPORT INFORMATION
  Report Type: Spontaneous
  Country: US (occurrence: US)
  Receive Date: 20150406
  Receipt Date: 20150409
  Transmission Date: 20150821
  Serious: No
  Sender: FDA-Public Use
  Company Number: US-PFIZER INC-2015113976

PATIENT
  Age: 40 Year
  Sex: Female

DRUGS (17)
  1. CYMBALTA [Concomitant]
     Active Substance: DULOXETINE HYDROCHLORIDE
     Dosage: 90 MG, 1X/DAY
  2. MORPHINE SULPHATE EXTENDED RELEASE [Concomitant]
     Dosage: 60 MG, 2X/DAY
     Route: 048
  3. SILVER SULFADIAZENE [Concomitant]
     Active Substance: SILVER SULFADIAZINE
     Dosage: UNK
  4. CHANTIX [Suspect]
     Active Substance: VARENICLINE TARTRATE
     Indication: SMOKING CESSATION THERAPY
     Dosage: UNK
     Dates: start: 20150328
  5. BACLOFEN. [Concomitant]
     Active Substance: BACLOFEN
     Dosage: 20 MG, 3X/DAY
     Route: 048
  6. EPIPEN [Concomitant]
     Active Substance: EPINEPHRINE
     Indication: ANAPHYLACTIC SHOCK
     Dosage: 0.3 MG, UNK
  7. TIZANIDINE (TIZANIDINE) [Concomitant]
     Active Substance: TIZANIDINE
     Dosage: 4 MG, 3X/DAY
  8. DIAZEPAM. [Concomitant]
     Active Substance: DIAZEPAM
     Dosage: 10 MG, 2X/DAY
  9. ARTIFICIAL TEARS [Concomitant]
     Active Substance: GLYCERIN\HYPROMELLOSES\POLYETHYLENE GLYCOL 400
     Dosage: 1.4 %, UNK
  10. NEURONTIN [Concomitant]
     Active Substance: GABAPENTIN
     Dosage: 600 MG, 3X/DAY
  11. LOMOTIL [Concomitant]
     Active Substance: ATROPINE SULFATE\DIPHENOXYLATE HYDROCHLORIDE
     Dosage: TAKES UP TO 6 IN A 24 HOUR PERIOD
  12. POTASSIUM [Concomitant]
     Active Substance: POTASSIUM
     Dosage: 1 DF, DAILY
     Route: 048
  13. MORPHINE SULFATE INSTANT RELEASE [Concomitant]
     Dosage: 30 MG, 3X/DAY
     Route: 048
  14. VESICARE [Concomitant]
     Active Substance: SOLIFENACIN SUCCINATE
     Dosage: 20 MG, 1X/DAY
  15. GUAIFENESIN. [Concomitant]
     Active Substance: GUAIFENESIN
     Dosage: 600 MG, 2X/DAY
     Route: 048
  16. RESTASIS [Concomitant]
     Active Substance: CYCLOSPORINE
     Dosage: 1 GTT, UNK
     Route: 047
  17. VICKS /00048102/ [Concomitant]
     Dosage: UNK

REACTIONS (13)
  - Insomnia [Unknown]
  - Gastrointestinal pain [Unknown]
  - Pain [Unknown]
  - Nasopharyngitis [Unknown]
  - Nightmare [Unknown]
  - Stress [Unknown]
  - Skin irritation [Unknown]
  - Pruritus [Unknown]
  - Skin discolouration [Unknown]
  - Gastric dilatation [Unknown]
  - Abdominal rigidity [Unknown]
  - Flatulence [Unknown]
  - Skin exfoliation [Unknown]
